FAERS Safety Report 9270419 (Version 2)
Quarter: 2013Q2

REPORT INFORMATION
  Report Type: Report from Study
  Country: JP (occurrence: JP)
  Receive Date: 20130503
  Receipt Date: 20130513
  Transmission Date: 20140414
  Serious: Yes (Hospitalization, Other)
  Sender: FDA-Public Use
  Company Number: JP-BRISTOL-MYERS SQUIBB COMPANY-18828202

PATIENT
  Age: 66 Year
  Sex: Female

DRUGS (6)
  1. CLAZAKIZUMAB [Suspect]
     Indication: RHEUMATOID ARTHRITIS
     Dosage: 31MY-19SP12(BLND)UNTIL19SP12?18OT-13DE12(200MG/4WK)?7FE13-4AP13(200MG/4WK)?SKPD 18OCT12+02MAY13
     Route: 058
     Dates: start: 20121018, end: 20130404
  2. METHOTREXATE [Suspect]
     Indication: RHEUMATOID ARTHRITIS
     Route: 048
     Dates: start: 20120531, end: 20120728
  3. LOXOPROFEN [Concomitant]
     Indication: RHEUMATOID ARTHRITIS
     Dates: start: 20120906
  4. OLMESARTAN MEDOXOMIL [Concomitant]
     Dates: start: 20120416
  5. TEPRENONE [Concomitant]
     Indication: RHEUMATOID ARTHRITIS
     Dates: start: 201103
  6. CELECOXIB [Concomitant]
     Indication: RHEUMATOID ARTHRITIS
     Dates: start: 201103

REACTIONS (1)
  - Pneumonia bacterial [Not Recovered/Not Resolved]
